FAERS Safety Report 6412087-5 (Version None)
Quarter: 2009Q4

REPORT INFORMATION
  Report Type: 
  Country: None (occurrence: None)
  Receive Date: 20091023
  Receipt Date: 20091015
  Transmission Date: 20100525
  Serious: Yes (Other)
  Sender: FDA-Public Use
  Company Number: US-ASTRAZENECA-2009SE20375

PATIENT

DRUGS (1)
  1. SEROQUEL [Suspect]
     Route: 048

REACTIONS (15)
  - ARTERIOSCLEROSIS [None]
  - BLINDNESS [None]
  - CARDIAC FAILURE ACUTE [None]
  - CEREBROVASCULAR ACCIDENT [None]
  - DIABETES MELLITUS [None]
  - FOOT OPERATION [None]
  - GANGRENE [None]
  - GASTRIC DISORDER [None]
  - HEADACHE [None]
  - MYOCARDIAL INFARCTION [None]
  - NEUROPATHY PERIPHERAL [None]
  - ORGANIC ERECTILE DYSFUNCTION [None]
  - PROSTATE INFECTION [None]
  - WEIGHT INCREASED [None]
  - WHEELCHAIR USER [None]
